FAERS Safety Report 12888525 (Version 1)
Quarter: 2016Q4

REPORT INFORMATION
  Report Type: Spontaneous
  Country: US (occurrence: US)
  Receive Date: 20161027
  Receipt Date: 20161027
  Transmission Date: 20170207
  Serious: No
  Sender: FDA-Public Use
  Company Number: US-PFIZER INC-2016500776

PATIENT
  Age: 7 Year

DRUGS (1)
  1. QUILLICHEW ER [Suspect]
     Active Substance: METHYLPHENIDATE HYDROCHLORIDE
     Dosage: (T UP TO 30 MG OF METHYLPHENIDATE)

REACTIONS (1)
  - Psychomotor hyperactivity [Unknown]
